FAERS Safety Report 5505995-0 (Version None)
Quarter: 2007Q4

REPORT INFORMATION
  Report Type: 
  Country: None (occurrence: None)
  Receive Date: 20071102
  Receipt Date: 20071102
  Transmission Date: 20080405
  Serious: Yes (Other)
  Sender: FDA-Public Use
  Company Number: None

PATIENT
  Age: 92 Year
  Sex: Female
  Weight: 68.9467 kg

DRUGS (1)
  1. AMLODIPINE [Suspect]

REACTIONS (1)
  - MUSCLE SPASMS [None]
